FAERS Safety Report 9628710 (Version 1)
Quarter: 2013Q4

REPORT INFORMATION
  Report Type: Spontaneous
  Country: IT (occurrence: IT)
  Receive Date: 20131017
  Receipt Date: 20131017
  Transmission Date: 20140711
  Serious: Yes (Hospitalization)
  Sender: FDA-Public Use
  Company Number: IT-MYLANLABS-2013S1022518

PATIENT
  Age: 83 Year
  Sex: Male

DRUGS (11)
  1. CARVEDILOL [Suspect]
     Indication: PRODUCT USED FOR UNKNOWN INDICATION
     Route: 048
     Dates: start: 20080601, end: 20130918
  2. LASIX [Suspect]
     Indication: PRODUCT USED FOR UNKNOWN INDICATION
     Route: 048
     Dates: start: 20080601, end: 20130918
  3. MICARDIS [Suspect]
     Indication: HYPERTENSION
     Route: 048
     Dates: start: 20130101, end: 20130918
  4. ALDACTONE [Suspect]
     Indication: PRODUCT USED FOR UNKNOWN INDICATION
     Route: 048
     Dates: start: 20130101, end: 20130918
  5. AVODART [Concomitant]
     Indication: PRODUCT USED FOR UNKNOWN INDICATION
  6. ZYLORIC [Concomitant]
     Indication: PRODUCT USED FOR UNKNOWN INDICATION
     Dosage: 300 MG TABLETS
  7. TAVOR [Concomitant]
     Indication: PRODUCT USED FOR UNKNOWN INDICATION
     Dosage: 1 MG TABLETS
  8. COUMADIN [Concomitant]
     Indication: PRODUCT USED FOR UNKNOWN INDICATION
     Dosage: 5 MG TABLETS
  9. LANSOX [Concomitant]
     Indication: PRODUCT USED FOR UNKNOWN INDICATION
  10. AMIODARONE [Concomitant]
     Indication: PRODUCT USED FOR UNKNOWN INDICATION
     Dates: start: 20080101
  11. ROSUVASTATIN CALCIUM [Concomitant]
     Indication: PRODUCT USED FOR UNKNOWN INDICATION

REACTIONS (4)
  - Renal failure acute [Recovering/Resolving]
  - Dehydration [Recovering/Resolving]
  - Hypotension [Recovering/Resolving]
  - Syncope [Recovering/Resolving]
